FAERS Safety Report 5493758-4 (Version None)
Quarter: 2007Q4

REPORT INFORMATION
  Report Type: 
  Country: None (occurrence: None)
  Receive Date: 20071023
  Receipt Date: 20071016
  Transmission Date: 20080405
  Serious: Yes (Other)
  Sender: FDA-Public Use
  Company Number: TW-ROXANE LABORATORIES, INC-2007-BP-22766RO

PATIENT
  Age: 43 Year
  Sex: Male

DRUGS (6)
  1. CITALOPRAM HYDROBROMIDE [Suspect]
     Indication: DEPRESSION
  2. CITALOPRAM HYDROBROMIDE [Suspect]
  3. PEGYLATED INTERFERON-ALPHA [Suspect]
     Indication: HEPATITIS C
     Route: 030
  4. RIBAVIRIN [Suspect]
     Indication: HEPATITIS C
     Route: 048
  5. HALOPERIDOL [Concomitant]
     Indication: INAPPROPRIATE AFFECT
  6. OXCARBAZEPINE [Concomitant]
     Indication: MANIA

REACTIONS (2)
  - DEPRESSION [None]
  - MANIA [None]
